FAERS Safety Report 23069678 (Version 3)
Quarter: 2023Q4

REPORT INFORMATION
  Report Type: Report from Study
  Country: US (occurrence: US)
  Receive Date: 20231016
  Receipt Date: 20231108
  Transmission Date: 20240110
  Serious: Yes (Hospitalization)
  Sender: FDA-Public Use
  Company Number: US-ALKERMES INC.-ALK-2023-004056

PATIENT
  Age: 57 Year
  Sex: Male

DRUGS (12)
  1. BUPRENORPHINE [Suspect]
     Active Substance: BUPRENORPHINE
     Indication: Product used for unknown indication
     Dosage: UNK MILLIGRAM, Q3WK, DAY 1 WEEKS 3 + 6
     Route: 030
  2. PLACEBO [Suspect]
     Active Substance: UNSPECIFIED INGREDIENT
     Indication: Product used for unknown indication
     Dosage: UNK MILLIGRAM, Q3WK, DAY 1 WEEKS 3 + 6
     Route: 030
  3. VIVITROL [Suspect]
     Active Substance: NALTREXONE
     Indication: Product used for unknown indication
     Dosage: UNK MILLIGRAM, Q3WK, DAY 1 WEEKS 3 + 6
     Route: 030
  4. VIVITROL [Suspect]
     Active Substance: NALTREXONE
     Indication: Product used for unknown indication
     Dosage: UNK MILLIGRAM, Q3WK, DAY 1 WEEKS 3 + 6
     Route: 030
  5. BUPRENORPHINE [Suspect]
     Active Substance: BUPRENORPHINE
     Dosage: UNK MILLIGRAM, Q4WK DOSE DAY 4-6
     Route: 058
  6. PLACEBO [Suspect]
     Active Substance: UNSPECIFIED INGREDIENT
     Dosage: UNK MILLIGRAM, Q4WK DOSE DAY 4-6
     Route: 058
  7. VIVITROL [Suspect]
     Active Substance: NALTREXONE
     Dosage: UNK MILLIGRAM, Q4WK DOSE DAY 4-6
     Route: 058
  8. VIVITROL [Suspect]
     Active Substance: NALTREXONE
     Dosage: UNK MILLIGRAM, Q4WK DOSE DAY 4-6
     Route: 058
  9. LISINOPRIL [Suspect]
     Active Substance: LISINOPRIL
     Indication: Hypertension
  10. AMLODIPINE [Concomitant]
     Active Substance: AMLODIPINE BESYLATE
     Indication: Product used for unknown indication
     Dosage: UNK
     Route: 065
  11. CHLORTHALIDONE [Concomitant]
     Active Substance: CHLORTHALIDONE
     Indication: Product used for unknown indication
     Dosage: UNK
     Route: 065
  12. ATORVASTATIN [Concomitant]
     Active Substance: ATORVASTATIN
     Indication: Product used for unknown indication
     Dosage: UNK
     Route: 065

REACTIONS (2)
  - Angioedema [Recovered/Resolved]
  - Lip swelling [Unknown]

NARRATIVE: CASE EVENT DATE: 20231007
